FAERS Safety Report 4718894-9 (Version None)
Quarter: 2005Q3

REPORT INFORMATION
  Report Type: 
  Country: None (occurrence: None)
  Receive Date: 20050719
  Receipt Date: 20050706
  Transmission Date: 20060218
  Serious: Yes (Hospitalization)
  Sender: FDA-Public Use
  Company Number: 2005097067

PATIENT
  Age: 18 Year
  Sex: Female

DRUGS (1)
  1. EPANUTIN INJECTABLE (PHENYTOIN SODIUM) [Suspect]
     Indication: CONVULSION
     Dosage: (1 IN 1 TOTAL), INTRAVENOUS
     Route: 042

REACTIONS (2)
  - COMPARTMENT SYNDROME [None]
  - PHLEBITIS [None]
